FAERS Safety Report 6529063-4 (Version None)
Quarter: 2010Q1

REPORT INFORMATION
  Report Type: 
  Country: None (occurrence: None)
  Receive Date: 20100106
  Receipt Date: 20100104
  Transmission Date: 20100710
  Serious: Yes (Other)
  Sender: FDA-Public Use
  Company Number: US-PFIZER INC-2010000074

PATIENT
  Age: 9 Year
  Sex: Female
  Weight: 23 kg

DRUGS (3)
  1. *NO SUBJECT DRUG [Suspect]
     Dosage: 1 TABLET
  2. SULFASALAZINE [Suspect]
     Indication: JUVENILE ARTHRITIS
     Dosage: 250 IN AM, 500 PM
     Route: 048
     Dates: start: 20090901
  3. ALEVE (CAPLET) [Concomitant]
     Dosage: UNK
     Dates: start: 20071201

REACTIONS (3)
  - DIZZINESS [None]
  - MIGRAINE [None]
  - NAUSEA [None]
